FAERS Safety Report 9353582 (Version 2)
Quarter: 2013Q3

REPORT INFORMATION
  Report Type: Spontaneous
  Country: US (occurrence: US)
  Receive Date: 20130618
  Receipt Date: 20130701
  Transmission Date: 20140515
  Serious: No
  Sender: FDA-Public Use
  Company Number: US-PFIZER INC-2013180742

PATIENT
  Age: 76 Year
  Sex: Female
  Weight: 68.03 kg

DRUGS (2)
  1. XELJANZ [Suspect]
     Indication: RHEUMATOID ARTHRITIS
     Dosage: 5 MG, 2X/DAY
     Route: 048
     Dates: start: 201304
  2. PREDNISONE [Concomitant]
     Dosage: 5 MG, UNK

REACTIONS (2)
  - Diarrhoea [Unknown]
  - Headache [Unknown]
